FAERS Safety Report 20629638 (Version 1)
Quarter: 2022Q1

REPORT INFORMATION
  Report Type: Spontaneous
  Country: GB (occurrence: GB)
  Receive Date: 20220323
  Receipt Date: 20220323
  Transmission Date: 20220423
  Serious: Yes (Death, Hospitalization, Other)
  Sender: FDA-Public Use
  Company Number: GB-GILEAD-2022-0574807

PATIENT
  Sex: Male

DRUGS (6)
  1. YESCARTA [Suspect]
     Active Substance: AXICABTAGENE CILOLEUCEL
     Indication: Primary mediastinal large B-cell lymphoma
     Dosage: UNK
     Route: 065
     Dates: start: 20190306, end: 20190306
  2. RITUXIMAB [Concomitant]
     Active Substance: RITUXIMAB
  3. GEMCITABINE;VINORELBINE [Concomitant]
  4. PREDNISONE [Concomitant]
     Active Substance: PREDNISONE
  5. IVE [Concomitant]
  6. COVID-19 VACCINE [Concomitant]

REACTIONS (10)
  - Post-acute COVID-19 syndrome [Fatal]
  - Dyspnoea [Unknown]
  - Neurological decompensation [Unknown]
  - Immune effector cell-associated neurotoxicity syndrome [Unknown]
  - Disease progression [Unknown]
  - Bronchiectasis [Unknown]
  - COVID-19 [Not Recovered/Not Resolved]
  - B-cell aplasia [Not Recovered/Not Resolved]
  - Immunoglobulins decreased [Unknown]
  - Sinusitis [Unknown]

NARRATIVE: CASE EVENT DATE: 20190330
